FAERS Safety Report 6768227-1 (Version None)
Quarter: 2010Q2

REPORT INFORMATION
  Report Type: 
  Country: None (occurrence: None)
  Receive Date: 20100614
  Receipt Date: 20100430
  Transmission Date: 20101027
  Serious: Yes (Death, Other)
  Sender: FDA-Public Use
  Company Number: US-BAXTER-2009BH019968

PATIENT
  Age: 60 Year
  Sex: Male

DRUGS (21)
  1. HEPARIN SODIUM [Suspect]
     Indication: CORONARY ARTERY BYPASS
     Route: 065
     Dates: start: 20071211, end: 20071212
  2. HEPARIN SODIUM [Suspect]
     Indication: CORONARY ANGIOPLASTY
     Route: 065
     Dates: start: 20071211, end: 20071212
  3. HEPARIN SODIUM [Suspect]
     Indication: THROMBECTOMY
     Route: 065
     Dates: start: 20071211, end: 20071212
  4. HEPARIN SODIUM [Suspect]
     Indication: CATHETERISATION CARDIAC
     Route: 065
     Dates: start: 20071211, end: 20071212
  5. HEPARIN SODIUM [Suspect]
     Indication: INTRA-AORTIC BALLOON PLACEMENT
     Route: 065
     Dates: start: 20071211, end: 20071212
  6. HEPARIN SODIUM [Suspect]
     Route: 065
     Dates: start: 20071215, end: 20071223
  7. HEPARIN SODIUM [Suspect]
     Route: 065
     Dates: start: 20071215, end: 20071223
  8. HEPARIN SODIUM [Suspect]
     Route: 065
     Dates: start: 20071215, end: 20071223
  9. HEPARIN SODIUM [Suspect]
     Route: 065
     Dates: start: 20071215, end: 20071223
  10. HEPARIN SODIUM [Suspect]
     Route: 065
     Dates: start: 20071215, end: 20071223
  11. HEPARIN SODIUM [Suspect]
     Route: 058
     Dates: start: 20071221
  12. HEPARIN SODIUM [Suspect]
     Route: 058
     Dates: start: 20071221
  13. HEPARIN SODIUM [Suspect]
     Route: 058
     Dates: start: 20071221
  14. HEPARIN SODIUM [Suspect]
     Route: 058
     Dates: start: 20071221
  15. HEPARIN SODIUM [Suspect]
     Route: 058
     Dates: start: 20071221
  16. HEPARIN SODIUM [Suspect]
     Route: 065
     Dates: start: 20071228, end: 20071228
  17. HEPARIN SODIUM [Suspect]
     Route: 065
     Dates: start: 20071228, end: 20071228
  18. HEPARIN SODIUM [Suspect]
     Route: 065
     Dates: start: 20071228, end: 20071228
  19. HEPARIN SODIUM [Suspect]
     Route: 065
     Dates: start: 20071228, end: 20071228
  20. HEPARIN SODIUM [Suspect]
     Route: 065
     Dates: start: 20071228, end: 20071228
  21. MULTI-VITAMINS [Concomitant]
     Indication: DRUG USE FOR UNKNOWN INDICATION
     Route: 048

REACTIONS (18)
  - ACUTE RESPIRATORY FAILURE [None]
  - APHASIA [None]
  - BRADYCARDIA [None]
  - CARDIO-RESPIRATORY ARREST [None]
  - DIARRHOEA [None]
  - DYSPHAGIA [None]
  - GRAFT COMPLICATION [None]
  - HEPARIN-INDUCED THROMBOCYTOPENIA [None]
  - HEPATIC FAILURE [None]
  - HYPOTENSION [None]
  - HYPOXIC ENCEPHALOPATHY [None]
  - LOBAR PNEUMONIA [None]
  - MENTAL DISORDER [None]
  - PAIN [None]
  - PLATELET COUNT DECREASED [None]
  - RENAL FAILURE [None]
  - UNRESPONSIVE TO STIMULI [None]
  - VOMITING [None]
